FAERS Safety Report 25030813 (Version 1)
Quarter: 2025Q1

REPORT INFORMATION
  Report Type: Spontaneous
  Country: US (occurrence: US)
  Receive Date: 20250303
  Receipt Date: 20250303
  Transmission Date: 20250408
  Serious: No
  Sender: TAKEDA
  Company Number: US-TAKEDA-2025TUS019308

PATIENT
  Age: 18 Year
  Sex: Male
  Weight: 92.7 kg

DRUGS (1)
  1. ENTYVIO [Suspect]
     Active Substance: VEDOLIZUMAB
     Indication: Colitis ulcerative
     Dosage: 300 MILLIGRAM, Q5WEEKS
     Dates: start: 2024

REACTIONS (3)
  - No adverse event [Unknown]
  - Product storage error [Unknown]
  - Off label use [Unknown]
